FAERS Safety Report 7486405-3 (Version None)
Quarter: 2011Q2

REPORT INFORMATION
  Report Type: 
  Country: None (occurrence: None)
  Receive Date: 20110517
  Receipt Date: 20110502
  Transmission Date: 20111010
  Serious: No
  Sender: FDA-Public Use
  Company Number: US-B.I. PHARMACEUTICALS,INC./RIDGEFIELD-2011-BP-12244BP

PATIENT
  Age: 94 Year
  Sex: Female

DRUGS (5)
  1. TRIAMTERENE [Concomitant]
     Route: 048
  2. BIOTHYROID [Concomitant]
     Indication: THYROIDECTOMY
  3. ATENOLOL [Concomitant]
     Indication: HYPERTENSION
     Route: 048
  4. PRADAXA [Suspect]
     Indication: ATRIAL FIBRILLATION
     Dosage: 300 MG
     Route: 048
     Dates: start: 20110301
  5. DIGOXIN [Concomitant]
     Indication: CARDIAC DISORDER
     Dosage: 125 MG
     Route: 048

REACTIONS (1)
  - DYSPNOEA [None]
